FAERS Safety Report 5878266-0 (Version None)
Quarter: 2008Q3

REPORT INFORMATION
  Report Type: 
  Country: None (occurrence: None)
  Receive Date: 20080911
  Receipt Date: 20080901
  Transmission Date: 20090109
  Serious: Yes (Hospitalization)
  Sender: FDA-Public Use
  Company Number: DE-AVENTIS-200812338DE

PATIENT
  Sex: Female

DRUGS (5)
  1. DOCETAXEL [Suspect]
     Indication: BREAST CANCER FEMALE
     Route: 042
     Dates: start: 20080408, end: 20080722
  2. DOXORUBICIN HCL [Suspect]
     Indication: BREAST CANCER FEMALE
     Route: 042
     Dates: start: 20080408, end: 20080722
  3. CYCLOPHOSPHAMIDE [Suspect]
     Indication: BREAST CANCER FEMALE
     Route: 042
     Dates: start: 20080408, end: 20080722
  4. ATACAND [Concomitant]
     Indication: HYPERTENSION
     Dosage: DOSE: NOT REPORTED
  5. METFORMIN HCL [Concomitant]
     Indication: DIABETES MELLITUS
     Dosage: DOSE: NOT REPORTED

REACTIONS (1)
  - TENDONITIS [None]
